FAERS Safety Report 17597421 (Version 1)
Quarter: 2020Q1

REPORT INFORMATION
  Report Type: Spontaneous
  Country: US (occurrence: US)
  Receive Date: 20200330
  Receipt Date: 20200330
  Transmission Date: 20200409
  Serious: Yes (Other)
  Sender: FDA-Public Use
  Company Number: US-AUROBINDO-AUR-APL-2020-003036

PATIENT
  Age: 44 Year
  Sex: Female
  Weight: 86 kg

DRUGS (8)
  1. TYROSINE [Concomitant]
     Active Substance: TYROSINE
     Indication: PRODUCT USED FOR UNKNOWN INDICATION
     Dosage: UNK
     Route: 065
  2. LAMIVUDINE. [Concomitant]
     Active Substance: LAMIVUDINE
     Indication: PRODUCT USED FOR UNKNOWN INDICATION
     Dosage: UNK
     Route: 065
  3. SERTRALINE HYDROCHLORIDE TABLETS 100MG [Suspect]
     Active Substance: SERTRALINE HYDROCHLORIDE
     Dosage: 0.5 DOSAGE FORM
     Route: 065
  4. SERTRALINE HYDROCHLORIDE TABLETS 50MG [Suspect]
     Active Substance: SERTRALINE HYDROCHLORIDE
     Dosage: 2 DOSAGE FORM, DAILY
     Route: 065
  5. ALLEGRA [Concomitant]
     Active Substance: FEXOFENADINE HYDROCHLORIDE
     Indication: PRODUCT USED FOR UNKNOWN INDICATION
     Dosage: UNK
     Route: 065
  6. MONTELUKAST SODIUM. [Concomitant]
     Active Substance: MONTELUKAST SODIUM
     Indication: PRODUCT USED FOR UNKNOWN INDICATION
     Dosage: UNK
     Route: 065
  7. SERTRALINE HYDROCHLORIDE TABLETS 50MG [Suspect]
     Active Substance: SERTRALINE HYDROCHLORIDE
     Indication: POST-TRAUMATIC STRESS DISORDER
     Dosage: 0.5 DOSAGE FORM
     Route: 065
  8. SERTRALINE HYDROCHLORIDE TABLETS 100MG [Suspect]
     Active Substance: SERTRALINE HYDROCHLORIDE
     Indication: POST-TRAUMATIC STRESS DISORDER
     Dosage: UNK
     Route: 065
     Dates: start: 2014

REACTIONS (3)
  - Angioedema [Not Recovered/Not Resolved]
  - Wrong technique in product usage process [Unknown]
  - Malaise [Not Recovered/Not Resolved]

NARRATIVE: CASE EVENT DATE: 20200111
